FAERS Safety Report 18376349 (Version 1)
Quarter: 2020Q4

REPORT INFORMATION
  Report Type: Spontaneous
  Country: US (occurrence: US)
  Receive Date: 20201011
  Receipt Date: 20201011
  Transmission Date: 20210114
  Serious: Yes (Other)
  Sender: FDA-Public Use
  Company Number: None

PATIENT
  Age: 32 Year
  Sex: Female
  Weight: 54 kg

DRUGS (3)
  1. LANSOPRAZOLE. [Concomitant]
     Active Substance: LANSOPRAZOLE
  2. ANTACID [Concomitant]
     Active Substance: ALUMINUM HYDROXIDE\CALCIUM CARBONATE\DIMETHICONE\MAGNESIUM HYDROXIDE
  3. SUCRALFATE. [Suspect]
     Active Substance: SUCRALFATE
     Indication: DYSPHAGIA
     Dosage: ?          QUANTITY:1 TABLET(S);?
     Route: 048
     Dates: start: 20201005, end: 20201011

REACTIONS (4)
  - Hypoaesthesia [None]
  - Swelling face [None]
  - Eye swelling [None]
  - Pharyngeal swelling [None]

NARRATIVE: CASE EVENT DATE: 20201011
